FAERS Safety Report 9757822 (Version 4)
Quarter: 2014Q1

REPORT INFORMATION
  Report Type: Report from Study
  Country: CA (occurrence: CA)
  Receive Date: 20131216
  Receipt Date: 20140128
  Transmission Date: 20141002
  Serious: Yes (Hospitalization, Disabling)
  Sender: FDA-Public Use
  Company Number: CA-ROCHE-1313957

PATIENT
  Age: 40 Year
  Sex: Male
  Weight: 78.6 kg

DRUGS (6)
  1. RIBAVIRIN [Suspect]
     Indication: HEPATITIS C
     Route: 048
     Dates: start: 20131023, end: 20131106
  2. BI 207127 [Suspect]
     Indication: HEPATITIS C
     Route: 048
     Dates: start: 20131023, end: 20131106
  3. BI 201335 [Suspect]
     Indication: HEPATITIS C
     Route: 048
     Dates: start: 20131023, end: 20131106
  4. TENOFOVIR [Suspect]
     Indication: HEPATITIS C
     Route: 048
     Dates: start: 20131007, end: 20131023
  5. VITAMIN K [Concomitant]
     Indication: DIARRHOEA
     Dosage: 1 ANZ/ DAY
     Route: 048
     Dates: start: 20131018
  6. COLECALCIFEROL [Concomitant]
     Indication: DIARRHOEA
     Dosage: 1 ANZ /DAY
     Route: 065
     Dates: start: 20131118

REACTIONS (3)
  - Reactive psychosis [Recovered/Resolved]
  - Acute psychosis [Recovered/Resolved]
  - Complex partial seizures [Recovered/Resolved]
